FAERS Safety Report 6018213-4 (Version None)
Quarter: 2008Q4

REPORT INFORMATION
  Report Type: 
  Country: None (occurrence: None)
  Receive Date: 20081223
  Receipt Date: 20081219
  Transmission Date: 20090506
  Serious: Yes (Life-Threatening)
  Sender: FDA-Public Use
  Company Number: JP-BRISTOL-MYERS SQUIBB COMPANY-14416549

PATIENT
  Age: 57 Year
  Sex: Female

DRUGS (2)
  1. TAXOL [Suspect]
     Indication: OVARIAN CANCER
     Dosage: STARTED ON 10SEP08
     Route: 041
     Dates: start: 20081022, end: 20081022
  2. PARAPLATIN [Suspect]
     Indication: OVARIAN CANCER
     Dosage: STARTED ON 10SEP08
     Route: 041
     Dates: start: 20081022, end: 20081022

REACTIONS (8)
  - ASCITES [None]
  - BONE MARROW FAILURE [None]
  - DEHYDRATION [None]
  - INTESTINAL OBSTRUCTION [None]
  - PLEURAL EFFUSION [None]
  - POSTOPERATIVE ADHESION [None]
  - SEPSIS [None]
  - SMALL INTESTINAL PERFORATION [None]
